FAERS Safety Report 20988564 (Version 1)
Quarter: 2022Q2

REPORT INFORMATION
  Report Type: Spontaneous
  Country: JP (occurrence: None)
  Receive Date: 20220621
  Receipt Date: 20220621
  Transmission Date: 20220721
  Serious: Yes (Other)
  Sender: FDA-Public Use
  Company Number: 2022A223982

PATIENT
  Age: 86 Year

DRUGS (3)
  1. LYNPARZA [Suspect]
     Active Substance: OLAPARIB
     Indication: Breast cancer
     Route: 048
  2. LYNPARZA [Suspect]
     Active Substance: OLAPARIB
     Indication: Breast cancer
     Dosage: REDUCED DOSE
     Route: 048
  3. DIGOXIN [Suspect]
     Active Substance: DIGOXIN
     Route: 065

REACTIONS (2)
  - Toxicity to various agents [Unknown]
  - Decreased appetite [Unknown]
